FAERS Safety Report 23391405 (Version 1)
Quarter: 2024Q1

REPORT INFORMATION
  Report Type: Report from Study
  Country: CH (occurrence: CH)
  Receive Date: 20240111
  Receipt Date: 20240111
  Transmission Date: 20240410
  Serious: Yes (Hospitalization)
  Sender: FDA-Public Use
  Company Number: CH-ABBVIE-5579353

PATIENT
  Age: 64 Year
  Sex: Female

DRUGS (2)
  1. RINVOQ [Suspect]
     Active Substance: UPADACITINIB
     Indication: Rheumatoid arthritis
     Route: 048
     Dates: start: 20221105, end: 20230624
  2. PREDNISONE [Concomitant]
     Active Substance: PREDNISONE
     Indication: Product used for unknown indication
     Dates: start: 20020615

REACTIONS (14)
  - Necrotising fasciitis [Unknown]
  - Erysipelas [Unknown]
  - Musculoskeletal disorder [Unknown]
  - Peripheral swelling [Unknown]
  - Central venous catheterisation [Recovered/Resolved]
  - Leukocyturia [Unknown]
  - Limb injury [Unknown]
  - Pain in extremity [Unknown]
  - Erythema [Unknown]
  - Type 2 diabetes mellitus [Unknown]
  - Inflammatory marker increased [Unknown]
  - Bacterial infection [Recovered/Resolved]
  - Fasciotomy [Unknown]
  - Abdominal pain [Unknown]

NARRATIVE: CASE EVENT DATE: 20230101
